FAERS Safety Report 4691724-X (Version None)
Quarter: 2005Q2

REPORT INFORMATION
  Report Type: 
  Country: None (occurrence: None)
  Receive Date: 20050616
  Receipt Date: 20050607
  Transmission Date: 20051028
  Serious: Yes (Death, Other)
  Sender: FDA-Public Use
  Company Number: 200515502GDDC

PATIENT
  Age: 66 Year
  Sex: Male

DRUGS (4)
  1. FRUSEMIDE [Suspect]
     Route: 048
     Dates: start: 19990101, end: 20001016
  2. AMIODARONE [Suspect]
     Dates: start: 19990301, end: 20001018
  3. OMEPRAZOLE [Suspect]
     Route: 048
     Dates: start: 19990101, end: 20001017
  4. SIMVASTATIN [Suspect]
     Indication: METABOLIC DISORDER
     Route: 048
     Dates: end: 20001017

REACTIONS (6)
  - ENCEPHALOPATHY [None]
  - GASTROINTESTINAL HAEMORRHAGE [None]
  - HEPATIC CIRRHOSIS [None]
  - HEPATIC FAILURE [None]
  - HEPATITIS [None]
  - VARICES OESOPHAGEAL [None]
